FAERS Safety Report 4626213-1 (Version None)
Quarter: 2005Q2

REPORT INFORMATION
  Report Type: 
  Country: None (occurrence: None)
  Receive Date: 20050331
  Receipt Date: 20040622
  Transmission Date: 20051028
  Serious: Yes (Other)
  Sender: FDA-Public Use
  Company Number: 200413111BCC

PATIENT
  Age: 29 Year
  Sex: Female
  Weight: 52.1637 kg

DRUGS (2)
  1. ALEVE (CAPLET) [Suspect]
     Indication: HEADACHE
     Dosage: PRN, ORAL
     Route: 048
  2. BIRTH CONTROL PILL [Concomitant]

REACTIONS (7)
  - ANAPHYLACTIC REACTION [None]
  - DYSPNOEA [None]
  - ERYTHEMA [None]
  - HYPOACUSIS [None]
  - SINUS CONGESTION [None]
  - SWELLING FACE [None]
  - THROAT TIGHTNESS [None]
